FAERS Safety Report 7700616-0 (Version None)
Quarter: 2011Q3

REPORT INFORMATION
  Report Type: 
  Country: None (occurrence: None)
  Receive Date: 20110822
  Receipt Date: 20110822
  Transmission Date: 20111222
  Serious: Yes (Hospitalization)
  Sender: FDA-Public Use
  Company Number: None

PATIENT
  Age: 84 Year
  Sex: Male

DRUGS (2)
  1. FAMCICLOVIR [Suspect]
     Indication: HERPES ZOSTER
     Dosage: 1 TAB
     Route: 048
     Dates: start: 20110809, end: 20110814
  2. BACTRIM [Concomitant]
     Indication: INFECTION
     Dosage: 1 TAB
     Route: 048
     Dates: start: 20110807, end: 20110814

REACTIONS (13)
  - MUSCLE TWITCHING [None]
  - SOMNOLENCE [None]
  - NIGHTMARE [None]
  - MENTAL STATUS CHANGES [None]
  - FALL [None]
  - LETHARGY [None]
  - RENAL FAILURE ACUTE [None]
  - MEMORY IMPAIRMENT [None]
  - TREMOR [None]
  - HYPOGLYCAEMIA [None]
  - MUSCLE SPASMS [None]
  - HALLUCINATION [None]
  - INCOHERENT [None]
